FAERS Safety Report 4273256-6 (Version None)
Quarter: 2004Q1

REPORT INFORMATION
  Report Type: 
  Country: None (occurrence: None)
  Receive Date: 20040116
  Receipt Date: 20040113
  Transmission Date: 20041129
  Serious: Yes (Hospitalization)
  Sender: FDA-Public Use
  Company Number: IT-ROCHE-355803

PATIENT
  Age: 73 Year
  Sex: Female

DRUGS (4)
  1. ROFERON-A [Suspect]
     Dosage: STRENGTH = 3,000,000 IU VIALS
     Route: 058
     Dates: start: 20030708, end: 20040108
  2. ACETAMINOPHEN [Suspect]
     Indication: DRUG USE FOR UNKNOWN INDICATION
     Route: 048
     Dates: start: 20030708, end: 20040108
  3. LOSAZID [Concomitant]
     Indication: HYPERTENSION
     Route: 048
  4. CARDURA [Concomitant]
     Indication: HYPERTENSION
     Route: 048

REACTIONS (1)
  - RASH MACULO-PAPULAR [None]
